FAERS Safety Report 6558663-0 (Version None)
Quarter: 2010Q1

REPORT INFORMATION
  Report Type: 
  Country: None (occurrence: None)
  Receive Date: 20100128
  Receipt Date: 20100128
  Transmission Date: 20100710
  Serious: Yes (Disabling)
  Sender: FDA-Public Use
  Company Number: None

PATIENT
  Age: 85 Year
  Sex: Male
  Weight: 67.1324 kg

DRUGS (2)
  1. MITOMYCIN [Suspect]
     Indication: BASAL CELL CARCINOMA
     Dosage: 4 DROPS 4X PER DAY EYE DROPS
     Dates: start: 20090327, end: 20090331
  2. MITOMYCIN [Suspect]
     Indication: MALIGNANT NEOPLASM OF CORNEA
     Dosage: 4 DROPS 4X PER DAY EYE DROPS
     Dates: start: 20090327, end: 20090331

REACTIONS (4)
  - BLINDNESS UNILATERAL [None]
  - EYE INJURY [None]
  - EYE PAIN [None]
  - EYE SWELLING [None]
